FAERS Safety Report 5112591-6 (Version None)
Quarter: 2006Q3

REPORT INFORMATION
  Report Type: 
  Country: None (occurrence: None)
  Receive Date: 20060919
  Receipt Date: 20060906
  Transmission Date: 20061208
  Serious: Yes (Other)
  Sender: FDA-Public Use
  Company Number: 2006108643

PATIENT
  Age: 57 Year
  Sex: Male
  Weight: 72 kg

DRUGS (5)
  1. DOXYCYCLINE [Suspect]
     Indication: LOWER RESPIRATORY TRACT INFECTION
     Dosage: 100 MG(100 MG, FREQUENCY: DAILY INTERVAL: EVERY DAY), ORAL
     Route: 048
     Dates: start: 20060123, end: 20060125
  2. FUROSEMIDE [Concomitant]
  3. GLICLAZIDE (GLICLAZIDE) [Concomitant]
  4. NEBIVOLOL (NEBIVOLOL) [Concomitant]
  5. RAMIPRIL [Concomitant]

REACTIONS (3)
  - ERYTHEMA [None]
  - IMPETIGO [None]
  - PAIN [None]
